FAERS Safety Report 4831599-9 (Version None)
Quarter: 2005Q4

REPORT INFORMATION
  Report Type: 
  Country: None (occurrence: None)
  Receive Date: 20051116
  Receipt Date: 20051103
  Transmission Date: 20060501
  Serious: Yes (Hospitalization)
  Sender: FDA-Public Use
  Company Number: 2005151437

PATIENT
  Age: 53 Year
  Sex: Male
  Weight: 70.3075 kg

DRUGS (8)
  1. ZYVOX [Suspect]
     Indication: STAPHYLOCOCCAL INFECTION
     Dosage: (1 IN 1 D), ORAL
     Route: 048
     Dates: start: 20020701, end: 20020101
  2. BACLOFEN [Concomitant]
  3. MULTIVITAMINS WITH MINERALS (MULTIVITAMINS WITH MINERALS) [Concomitant]
  4. OXYCODONE HCL [Concomitant]
  5. PAXIL [Concomitant]
  6. ASPIRIN [Concomitant]
  7. VITAMIN C (VITAMIN C) [Concomitant]
  8. VITAMIN E [Concomitant]

REACTIONS (8)
  - ARTHRITIS [None]
  - BLOOD CHOLESTEROL INCREASED [None]
  - CEREBROVASCULAR ACCIDENT [None]
  - COMA [None]
  - DECUBITUS ULCER [None]
  - MYALGIA [None]
  - MYOCARDIAL INFARCTION [None]
  - THINKING ABNORMAL [None]
